FAERS Safety Report 19580189 (Version 2)
Quarter: 2021Q4

REPORT INFORMATION
  Report Type: Spontaneous
  Country: US (occurrence: US)
  Receive Date: 20210720
  Receipt Date: 20211025
  Transmission Date: 20220304
  Serious: Yes (Death)
  Sender: FDA-Public Use
  Company Number: US-JNJFOC-20210738180

PATIENT
  Sex: Female

DRUGS (2)
  1. BALVERSA [Suspect]
     Active Substance: ERDAFITINIB
     Indication: Product used for unknown indication
     Route: 048
     Dates: start: 20210401
  2. BALVERSA [Suspect]
     Active Substance: ERDAFITINIB
     Route: 048

REACTIONS (1)
  - Death [Fatal]
